FAERS Safety Report 4625129-4 (Version None)
Quarter: 2005Q2

REPORT INFORMATION
  Report Type: 
  Country: None (occurrence: None)
  Receive Date: 20050401
  Receipt Date: 20050323
  Transmission Date: 20051028
  Serious: Yes (Hospitalization)
  Sender: FDA-Public Use
  Company Number: A0550950A

PATIENT
  Age: 65 Year
  Sex: Male
  Weight: 96.8 kg

DRUGS (4)
  1. TUMS [Suspect]
     Indication: DYSPEPSIA
     Route: 048
     Dates: start: 19580101
  2. TOPROL-XL [Concomitant]
     Route: 048
  3. PRILOSEC [Concomitant]
     Route: 048
  4. SKELAXIN [Concomitant]
     Route: 048

REACTIONS (3)
  - CARDIOVASCULAR DISORDER [None]
  - INTERVERTEBRAL DISC PROTRUSION [None]
  - NERVE COMPRESSION [None]
